FAERS Safety Report 12943554 (Version 1)
Quarter: 2016Q4

REPORT INFORMATION
  Report Type: Spontaneous
  Country: JP (occurrence: JP)
  Receive Date: 20161115
  Receipt Date: 20161115
  Transmission Date: 20170207
  Serious: Yes (Hospitalization)
  Sender: FDA-Public Use
  Company Number: JP-ELI_LILLY_AND_COMPANY-JP201611002118

PATIENT
  Age: 40 Year

DRUGS (4)
  1. IRINOTECAN HYDROCHLORIDE. [Concomitant]
     Active Substance: IRINOTECAN HYDROCHLORIDE
     Indication: PRODUCT USED FOR UNKNOWN INDICATION
     Route: 042
  2. CYRAMZA [Suspect]
     Active Substance: RAMUCIRUMAB
     Indication: PRODUCT USED FOR UNKNOWN INDICATION
     Route: 042
  3. LEVOFOLINATE [Concomitant]
     Active Substance: LEVOLEUCOVORIN CALCIUM
     Indication: PRODUCT USED FOR UNKNOWN INDICATION
     Route: 042
  4. FLUOROURACIL. [Concomitant]
     Active Substance: FLUOROURACIL
     Indication: PRODUCT USED FOR UNKNOWN INDICATION
     Route: 042

REACTIONS (1)
  - Embolism venous [Unknown]
